FAERS Safety Report 6197683-5 (Version None)
Quarter: 2009Q2

REPORT INFORMATION
  Report Type: 
  Country: None (occurrence: None)
  Receive Date: 20090521
  Receipt Date: 20090519
  Transmission Date: 20091009
  Serious: Yes (Death, Hospitalization)
  Sender: FDA-Public Use
  Company Number: CH-BRISTOL-MYERS SQUIBB COMPANY-14557052

PATIENT
  Age: 61 Year
  Sex: Male

DRUGS (7)
  1. CETUXIMAB [Suspect]
     Indication: PROSTATE CANCER
     Dosage: FIRST INFUSION ON 05FEB09-800MG.
     Route: 042
     Dates: start: 20090212, end: 20090226
  2. DOCETAXEL [Suspect]
     Indication: PROSTATE CANCER
     Route: 042
     Dates: start: 20090205, end: 20090205
  3. PREDNISOLONE [Concomitant]
     Route: 048
     Dates: start: 20090122
  4. ACETAMINOPHEN [Concomitant]
     Route: 048
     Dates: start: 20090122
  5. NEXIUM [Concomitant]
     Route: 048
     Dates: start: 20090122
  6. MST [Concomitant]
     Route: 048
     Dates: start: 20090122
  7. CLEXANE [Concomitant]
     Route: 058
     Dates: start: 20090122, end: 20090304

REACTIONS (3)
  - CEREBROVASCULAR ACCIDENT [None]
  - DYSARTHRIA [None]
  - FACIAL PARESIS [None]
